FAERS Safety Report 24013084 (Version 1)
Quarter: 2024Q2

REPORT INFORMATION
  Report Type: Spontaneous
  Country: DK (occurrence: DK)
  Receive Date: 20240626
  Receipt Date: 20240626
  Transmission Date: 20240716
  Serious: Yes (Hospitalization)
  Sender: FDA-Public Use
  Company Number: None

PATIENT
  Age: 54 Year
  Sex: Male
  Weight: 77 kg

DRUGS (1)
  1. VORICONAZOLE [Suspect]
     Active Substance: VORICONAZOLE
     Indication: Bronchopulmonary aspergillosis
     Dosage: DOSAGE: 12000-16000 MG ADMINISTERED ONCE AS A SINGLE DOSE TAKEN IN AFFECT A FEW DAYS PRIOR HOSPITALI
     Route: 048
     Dates: start: 20240522, end: 20240528

REACTIONS (5)
  - Mental status changes [Unknown]
  - Confusional state [Not Recovered/Not Resolved]
  - Cognitive disorder [Unknown]
  - Vomiting [Not Recovered/Not Resolved]
  - Overdose [Recovered/Resolved]

NARRATIVE: CASE EVENT DATE: 20240501
